FAERS Safety Report 7618484-4 (Version None)
Quarter: 2011Q3

REPORT INFORMATION
  Report Type: 
  Country: None (occurrence: None)
  Receive Date: 20110718
  Receipt Date: 20110711
  Transmission Date: 20111222
  Serious: Yes (Other)
  Sender: FDA-Public Use
  Company Number: DE-GENENTECH-274424

PATIENT
  Age: 65 Year
  Sex: Female

DRUGS (5)
  1. MABTHERA [Suspect]
     Indication: B-CELL LYMPHOMA
     Dosage: 375 MG/M2, UNK
     Route: 065
  2. PREDNISONE [Concomitant]
     Indication: B-CELL LYMPHOMA
  3. BENDAMUSTINE [Concomitant]
     Indication: BONE MARROW DISORDER
     Dosage: 180 MG/M2, UNK
  4. MABTHERA [Suspect]
     Dosage: 200 MG, UNK
     Route: 065
  5. CYCLOPHOSPHAMIDE [Concomitant]
     Indication: B-CELL LYMPHOMA
     Dosage: 200 MG/M2, UNK

REACTIONS (4)
  - BRONCHOPULMONARY ASPERGILLOSIS [None]
  - FUNGAL INFECTION [None]
  - BONE MARROW FAILURE [None]
  - SEPSIS [None]
